FAERS Safety Report 22138599 (Version 2)
Quarter: 2023Q1

REPORT INFORMATION
  Report Type: Spontaneous
  Country: JP (occurrence: JP)
  Receive Date: 20230326
  Receipt Date: 20230327
  Transmission Date: 20230418
  Serious: Yes (Death)
  Sender: FDA-Public Use
  Company Number: JP-002147023-NVSJ2023JP005275

PATIENT

DRUGS (1)
  1. TABRECTA [Suspect]
     Active Substance: CAPMATINIB
     Indication: Lung neoplasm malignant
     Dosage: UNK
     Route: 048
     Dates: start: 20230314

REACTIONS (2)
  - Lung neoplasm malignant [Fatal]
  - Malignant neoplasm progression [Fatal]
